FAERS Safety Report 9742117 (Version 2)
Quarter: 2013Q4

REPORT INFORMATION
  Report Type: Spontaneous
  Country: US (occurrence: US)
  Receive Date: 20131210
  Receipt Date: 20131210
  Transmission Date: 20140711
  Serious: No
  Sender: FDA-Public Use
  Company Number: US-ENDO PHARMACEUTICALS INC.-CARI20130002

PATIENT
  Age: 55 Year
  Sex: Female
  Weight: 61.29 kg

DRUGS (1)
  1. CARISOPRODOL TABLETS 350MG [Suspect]
     Indication: MUSCLE RELAXANT THERAPY
     Route: 048
     Dates: start: 201212

REACTIONS (4)
  - Dysarthria [Recovered/Resolved]
  - Influenza [Unknown]
  - Dry mouth [Unknown]
  - Drug ineffective [Unknown]
